FAERS Safety Report 17584985 (Version 2)
Quarter: 2020Q1

REPORT INFORMATION
  Report Type: Report from Study
  Country: CN (occurrence: CN)
  Receive Date: 20200326
  Receipt Date: 20200330
  Transmission Date: 20200409
  Serious: Yes (Hospitalization)
  Sender: FDA-Public Use
  Company Number: CN-PFIZER INC-2020118507

PATIENT
  Age: 43 Year
  Sex: Female
  Weight: 67 kg

DRUGS (3)
  1. SILYMARIN [SILYBUM MARIANUM] [Concomitant]
     Indication: ASPARTATE AMINOTRANSFERASE INCREASED
  2. CRIZOTINIB [Suspect]
     Active Substance: CRIZOTINIB
     Dosage: 250 MG, 2X/DAY
     Route: 048
     Dates: start: 20141230, end: 20191225
  3. SILYMARIN [SILYBUM MARIANUM] [Concomitant]
     Indication: PROTEIN TOTAL DECREASED
     Dosage: 2 DF, 2X/DAY
     Route: 048
     Dates: start: 20180323

REACTIONS (1)
  - Hypoproteinaemia [Recovered/Resolved]

NARRATIVE: CASE EVENT DATE: 20190817
